FAERS Safety Report 17088270 (Version 2)
Quarter: 2019Q4

REPORT INFORMATION
  Report Type: Spontaneous
  Country: AT (occurrence: AT)
  Receive Date: 20191128
  Receipt Date: 20191206
  Transmission Date: 20200122
  Serious: Yes (Other)
  Sender: FDA-Public Use
  Company Number: AT-DSJP-DSE-2019-147208

PATIENT

DRUGS (1)
  1. MENCORD [Suspect]
     Active Substance: OLMESARTAN MEDOXOMIL
     Indication: FOETAL EXPOSURE DURING PREGNANCY
     Dosage: UNK
     Route: 064
     Dates: start: 2016, end: 2016

REACTIONS (3)
  - Renal hypertension [Unknown]
  - Foetal exposure during pregnancy [Recovered/Resolved]
  - Renal failure [Unknown]

NARRATIVE: CASE EVENT DATE: 2016
